FAERS Safety Report 25680472 (Version 1)
Quarter: 2025Q3

REPORT INFORMATION
  Report Type: Spontaneous
  Country: KR (occurrence: KR)
  Receive Date: 20250814
  Receipt Date: 20250814
  Transmission Date: 20251020
  Serious: Yes (Hospitalization, Other)
  Sender: UNICHEM
  Company Number: KR-UNICHEM LABORATORIES LIMITED-UNI-2025-KR-002984

PATIENT

DRUGS (16)
  1. AMIODARONE [Suspect]
     Active Substance: AMIODARONE
     Indication: Myocardial ischaemia
     Route: 065
  2. AMIODARONE [Suspect]
     Active Substance: AMIODARONE
     Indication: Atrial fibrillation
     Route: 065
  3. CLOPIDOGREL [Concomitant]
     Active Substance: CLOPIDOGREL BISULFATE
     Indication: Myocardial ischaemia
     Route: 065
  4. CLOPIDOGREL [Concomitant]
     Active Substance: CLOPIDOGREL BISULFATE
     Indication: Atrial fibrillation
  5. PITVASTATIN [Concomitant]
     Indication: Myocardial ischaemia
     Route: 065
  6. PITVASTATIN [Concomitant]
     Indication: Atrial fibrillation
  7. VALSARTAN [Concomitant]
     Active Substance: VALSARTAN
     Indication: Myocardial ischaemia
     Route: 065
  8. VALSARTAN [Concomitant]
     Active Substance: VALSARTAN
     Indication: Atrial fibrillation
  9. RIVAROXABAN [Concomitant]
     Active Substance: RIVAROXABAN
     Indication: Myocardial ischaemia
     Route: 065
  10. RIVAROXABAN [Concomitant]
     Active Substance: RIVAROXABAN
     Indication: Atrial fibrillation
  11. NICORNADIL [Concomitant]
     Indication: Myocardial ischaemia
     Route: 065
  12. NICORNADIL [Concomitant]
     Indication: Atrial fibrillation
  13. DILTIAZEM [Concomitant]
     Active Substance: DILTIAZEM
     Indication: Myocardial ischaemia
     Route: 065
  14. DILTIAZEM [Concomitant]
     Active Substance: DILTIAZEM
     Indication: Atrial fibrillation
  15. FUROSEMIDE [Concomitant]
     Active Substance: FUROSEMIDE
     Indication: Myocardial ischaemia
     Route: 065
  16. FUROSEMIDE [Concomitant]
     Active Substance: FUROSEMIDE
     Indication: Atrial fibrillation

REACTIONS (4)
  - Cornea verticillata [Recovered/Resolved]
  - Hepatotoxicity [Recovered/Resolved]
  - Pulmonary toxicity [Recovered/Resolved]
  - Hyperthyroidism [Recovered/Resolved]
